FAERS Safety Report 9289337 (Version 2)
Quarter: 2013Q3

REPORT INFORMATION
  Report Type: Spontaneous
  Country: US (occurrence: US)
  Receive Date: 20130514
  Receipt Date: 20130722
  Transmission Date: 20140515
  Serious: Yes (Hospitalization, Other)
  Sender: FDA-Public Use
  Company Number: US-PFIZER INC-2013148193

PATIENT
  Age: 81 Year
  Sex: Female
  Weight: 83.9 kg

DRUGS (12)
  1. ACCUPRIL [Suspect]
     Indication: BLOOD PRESSURE ABNORMAL
     Dosage: 20 MG, DAILY
  2. NORVASC [Suspect]
     Dosage: 5 MG, (HALF OF 10 MG TABLET)
  3. CRESTOR [Concomitant]
     Dosage: UNK
  4. ONGLYZA [Concomitant]
     Dosage: 2.5 MG, DAILY
  5. FUROSEMIDE [Concomitant]
     Dosage: 25 MG, DAILY
  6. IMDUR [Concomitant]
     Dosage: 30 MG, DAILY
  7. KLOR-CON [Concomitant]
     Dosage: 20 MG, DAILY
  8. TOPROL [Concomitant]
     Dosage: 10 MG (HALF OF 20 MG TABLET), DAILY
  9. RANITIDINE [Concomitant]
     Dosage: 2 TABLETS DAILY
  10. VITAMIN D [Concomitant]
     Dosage: 1000 IU, 1X/DAY
  11. ASPIRIN [Concomitant]
     Dosage: 81 MG, DAILY
  12. REMIFEMIN [Concomitant]
     Dosage: UNK, DAILY

REACTIONS (2)
  - Cardiac disorder [Unknown]
  - Cerebrovascular accident [Unknown]
